FAERS Safety Report 8349452-5 (Version None)
Quarter: 2012Q2

REPORT INFORMATION
  Report Type: 
  Country: None (occurrence: None)
  Receive Date: 20120510
  Receipt Date: 20100820
  Transmission Date: 20120825
  Serious: No
  Sender: FDA-Public Use
  Company Number: US-TEVA-2010004476

PATIENT
  Sex: Female
  Weight: 56.75 kg

DRUGS (2)
  1. NUVIGIL [Suspect]
     Indication: NARCOLEPSY
     Dosage: 450 MILLIGRAM;
     Route: 048
     Dates: start: 20100813
  2. CYMBALTA [Concomitant]
     Indication: DEPRESSION
     Dates: start: 20050101

REACTIONS (2)
  - DRUG PRESCRIBING ERROR [None]
  - DRUG INEFFECTIVE [None]
